FAERS Safety Report 8584549-6 (Version None)
Quarter: 2012Q3

REPORT INFORMATION
  Report Type: 
  Country: None (occurrence: None)
  Receive Date: 20120810
  Receipt Date: 20120805
  Transmission Date: 20120928
  Serious: Yes (Hospitalization, Disabling)
  Sender: FDA-Public Use
  Company Number: US-AMGEN-USASP2012049268

PATIENT
  Age: 58 Year
  Sex: Female

DRUGS (1)
  1. ENBREL [Suspect]
     Indication: RHEUMATOID ARTHRITIS
     Dosage: 50 MG, QWK
     Dates: start: 19990101

REACTIONS (5)
  - INCONTINENCE [None]
  - MUSCLE ATROPHY [None]
  - BEDRIDDEN [None]
  - CARDIAC FAILURE CONGESTIVE [None]
  - INJECTION SITE PAIN [None]
